FAERS Safety Report 23285293 (Version 4)
Quarter: 2024Q1

REPORT INFORMATION
  Report Type: Spontaneous
  Country: FR (occurrence: None)
  Receive Date: 20231211
  Receipt Date: 20240219
  Transmission Date: 20240409
  Serious: Yes (Hospitalization, Other)
  Sender: FDA-Public Use
  Company Number: 2023A277540

PATIENT
  Age: 18 Day
  Weight: 4.1 kg

DRUGS (1)
  1. BEYFORTUS [Suspect]
     Active Substance: NIRSEVIMAB-ALIP
     Dosage: 50 MG50.0MG ONCE/SINGLE ADMINISTRATION
     Dates: start: 20231113, end: 20231113

REACTIONS (8)
  - Respiratory syncytial virus bronchiolitis [Recovered/Resolved]
  - Cough [Not Recovered/Not Resolved]
  - Dependence on oxygen therapy [Recovered/Resolved]
  - Drug ineffective [Unknown]
  - Feeding disorder [Unknown]
  - Decreased appetite [Unknown]
  - Rhinitis [Unknown]
  - Wheezing [Unknown]

NARRATIVE: CASE EVENT DATE: 20231123
